FAERS Safety Report 11503931 (Version 5)
Quarter: 2015Q4

REPORT INFORMATION
  Report Type: Spontaneous
  Country: JP (occurrence: JP)
  Receive Date: 20150914
  Receipt Date: 20151029
  Transmission Date: 20160304
  Serious: Yes (Life-Threatening, Hospitalization)
  Sender: FDA-Public Use
  Company Number: JP-ABBVIE-15P-087-1462197-00

PATIENT
  Age: 74 Year
  Sex: Male

DRUGS (7)
  1. LOXOPROFEN SODIUM [Concomitant]
     Active Substance: LOXOPROFEN SODIUM
     Indication: PRODUCT USED FOR UNKNOWN INDICATION
     Route: 048
  2. SIMPONI [Suspect]
     Active Substance: GOLIMUMAB
     Indication: RHEUMATOID ARTHRITIS
     Route: 065
     Dates: start: 201306, end: 201406
  3. RHEUMATREX [Suspect]
     Active Substance: METHOTREXATE SODIUM
     Route: 065
     Dates: start: 2013, end: 201406
  4. METHOTREXATE [Concomitant]
     Active Substance: METHOTREXATE
     Indication: PRODUCT USED FOR UNKNOWN INDICATION
     Route: 048
     Dates: start: 20050715, end: 20140213
  5. RHEUMATREX [Suspect]
     Active Substance: METHOTREXATE SODIUM
     Route: 065
     Dates: start: 2010, end: 201212
  6. HUMIRA [Suspect]
     Active Substance: ADALIMUMAB
     Indication: RHEUMATOID ARTHRITIS
     Route: 058
     Dates: start: 20090511, end: 201306
  7. RHEUMATREX [Suspect]
     Active Substance: METHOTREXATE SODIUM
     Indication: RHEUMATOID ARTHRITIS
     Route: 065
     Dates: start: 2005

REACTIONS (4)
  - Mean cell volume increased [Recovered/Resolved]
  - Myelodysplastic syndrome [Not Recovered/Not Resolved]
  - Angina unstable [Recovered/Resolved]
  - Septic shock [Recovered/Resolved]

NARRATIVE: CASE EVENT DATE: 20121210
